FAERS Safety Report 24623842 (Version 1)
Quarter: 2024Q4

REPORT INFORMATION
  Report Type: Spontaneous
  Country: IT (occurrence: IT)
  Receive Date: 20241115
  Receipt Date: 20241115
  Transmission Date: 20250114
  Serious: Yes (Other)
  Sender: RANBAXY
  Company Number: IT-SUN PHARMACEUTICAL INDUSTRIES LTD-2024RR-479277

PATIENT
  Age: 70 Year
  Sex: Male

DRUGS (4)
  1. OXALIPLATIN [Suspect]
     Active Substance: OXALIPLATIN
     Indication: Intestinal adenocarcinoma
     Dosage: 105.83 MILLIGRAM
     Route: 065
     Dates: start: 20240821, end: 20240821
  2. FLUOROURACIL [Suspect]
     Active Substance: FLUOROURACIL
     Indication: Intestinal adenocarcinoma
     Dosage: 498 MILLIGRAM
     Route: 040
     Dates: start: 20240821, end: 20240821
  3. FLUOROURACIL [Suspect]
     Active Substance: FLUOROURACIL
     Dosage: 2988 MILLIGRAM
     Route: 040
     Dates: start: 20240821, end: 20240821
  4. LEUCOVORIN CALCIUM [Concomitant]
     Active Substance: LEUCOVORIN CALCIUM
     Indication: Product used for unknown indication
     Dosage: 332 MILLIGRAM
     Route: 065

REACTIONS (3)
  - Azotaemia [Unknown]
  - Blood creatinine increased [Unknown]
  - Blood lactate dehydrogenase increased [Unknown]

NARRATIVE: CASE EVENT DATE: 20240902
